FAERS Safety Report 20188045 (Version 1)
Quarter: 2021Q4

REPORT INFORMATION
  Report Type: Spontaneous
  Country: US (occurrence: None)
  Receive Date: 20211215
  Receipt Date: 20211215
  Transmission Date: 20220303
  Serious: No
  Sender: FDA-Public Use
  Company Number: None

PATIENT
  Age: 82 Year
  Sex: Male
  Weight: 70.76 kg

DRUGS (10)
  1. ZOLEDRONIC ACID [Suspect]
     Active Substance: ZOLEDRONIC ACID
     Indication: Osteopenia
     Dosage: OTHER FREQUENCY : YEARLY;?
     Route: 042
     Dates: start: 20211130, end: 20211201
  2. ALLOPURINOL [Concomitant]
  3. ATORVASTATIN [Concomitant]
     Active Substance: ATORVASTATIN
  4. EZETIMIBE [Concomitant]
  5. METFORMIN [Concomitant]
     Active Substance: METFORMIN HYDROCHLORIDE
  6. MUPIROCIN [Concomitant]
     Active Substance: MUPIROCIN
  7. OMEPRAZOLE [Concomitant]
     Active Substance: OMEPRAZOLE
  8. PROPRANOLOL [Concomitant]
     Active Substance: PROPRANOLOL HYDROCHLORIDE
  9. SILDOSIN [Concomitant]
  10. PAZEO [Concomitant]
     Active Substance: OLOPATADINE HYDROCHLORIDE

REACTIONS (7)
  - Pyrexia [None]
  - Nausea [None]
  - Myalgia [None]
  - Eye pain [None]
  - Ocular hyperaemia [None]
  - Facial pain [None]
  - Iridocyclitis [None]

NARRATIVE: CASE EVENT DATE: 20211130
